FAERS Safety Report 6231416-9 (Version None)
Quarter: 2009Q2

REPORT INFORMATION
  Report Type: 
  Country: None (occurrence: None)
  Receive Date: 20090603
  Receipt Date: 20090603
  Transmission Date: 20091009
  Serious: Yes (Other)
  Sender: FDA-Public Use
  Company Number: None

PATIENT
  Age: 51 Year
  Sex: Female
  Weight: 73.0291 kg

DRUGS (1)
  1. LEVAQUIN [Suspect]
     Indication: SINUSITIS
     Dosage: 500MG 1 TIME PER DAY ORAL
     Route: 048
     Dates: start: 20090311, end: 20090322

REACTIONS (9)
  - ARTHRALGIA [None]
  - ARTHRITIS [None]
  - ERYTHEMA [None]
  - GASTROINTESTINAL DISORDER [None]
  - INFLUENZA LIKE ILLNESS [None]
  - JOINT SWELLING [None]
  - MUSCLE DISORDER [None]
  - MYALGIA [None]
  - SWELLING [None]
